FAERS Safety Report 7796063-6 (Version None)
Quarter: 2011Q4

REPORT INFORMATION
  Report Type: 
  Country: None (occurrence: None)
  Receive Date: 20111004
  Receipt Date: 20110927
  Transmission Date: 20120403
  Serious: Yes (Other)
  Sender: FDA-Public Use
  Company Number: NL-TYCO HEALTHCARE/MALLINCKRODT-T201101905

PATIENT
  Age: 26 Year
  Sex: Female
  Weight: 50 kg

DRUGS (1)
  1. ANAFRANIL CAP [Suspect]
     Indication: PANIC DISORDER
     Dosage: 50 MG, QD

REACTIONS (2)
  - PRE-ECLAMPSIA [None]
  - MATERNAL EXPOSURE DURING PREGNANCY [None]
